FAERS Safety Report 11346940 (Version 1)
Quarter: 2015Q3

REPORT INFORMATION
  Report Type: Spontaneous
  Country: US (occurrence: US)
  Receive Date: 20150803
  Receipt Date: 20150803
  Transmission Date: 20151125
  Serious: No
  Sender: FDA-Public Use
  Company Number: US-ELI_LILLY_AND_COMPANY-US201010006553

PATIENT
  Sex: Male
  Weight: 37.64 kg

DRUGS (4)
  1. CLONIDINE. [Concomitant]
     Active Substance: CLONIDINE
  2. FOCALIN [Concomitant]
     Active Substance: DEXMETHYLPHENIDATE HYDROCHLORIDE
     Indication: ATTENTION DEFICIT/HYPERACTIVITY DISORDER
     Dosage: 1 D/F, UNK
     Dates: start: 20100430
  3. STRATTERA [Suspect]
     Active Substance: ATOMOXETINE HYDROCHLORIDE
     Indication: ATTENTION DEFICIT/HYPERACTIVITY DISORDER
     Dosage: 2 MG/KG, UNK
     Route: 048
     Dates: start: 20040129, end: 20100420
  4. ABILIFY [Concomitant]
     Active Substance: ARIPIPRAZOLE

REACTIONS (4)
  - Disturbance in attention [Recovered/Resolved]
  - Drug ineffective [Recovered/Resolved]
  - Impulsive behaviour [Recovered/Resolved]
  - Prescribed overdose [Recovered/Resolved]

NARRATIVE: CASE EVENT DATE: 20040129
